FAERS Safety Report 22317804 (Version 1)
Quarter: 2023Q2

REPORT INFORMATION
  Report Type: Spontaneous
  Country: US (occurrence: US)
  Receive Date: 20230515
  Receipt Date: 20230515
  Transmission Date: 20230722
  Serious: No
  Sender: FDA-Public Use
  Company Number: US-NOVEN PHARMACEUTICALS, INC.-2023-NOV-US000183

PATIENT
  Sex: Male
  Weight: 108.84 kg

DRUGS (2)
  1. DAYTRANA [Suspect]
     Active Substance: METHYLPHENIDATE
     Indication: Attention deficit hyperactivity disorder
     Dosage: UNK, UNKNOWN
     Route: 062
     Dates: start: 2013
  2. SECUADO [Concomitant]
     Active Substance: ASENAPINE
     Indication: Affective disorder
     Dosage: UNK, UNKNOWN
     Route: 062

REACTIONS (5)
  - Device difficult to use [Recovered/Resolved]
  - Device issue [Recovered/Resolved]
  - Device adhesion issue [Recovered/Resolved]
  - Off label use [Recovered/Resolved]
  - No adverse event [Unknown]
